APPROVED DRUG PRODUCT: LIDOCAINE HYDROCHLORIDE
Active Ingredient: LIDOCAINE HYDROCHLORIDE
Strength: 4%
Dosage Form/Route: SOLUTION;TOPICAL
Application: A089688 | Product #001
Applicant: PACO RESEARCH CORP
Approved: Jun 30, 1989 | RLD: No | RS: No | Type: DISCN